FAERS Safety Report 15672694 (Version 6)
Quarter: 2019Q2

REPORT INFORMATION
  Report Type: Report from Study
  Country: US (occurrence: US)
  Receive Date: 20181129
  Receipt Date: 20190611
  Transmission Date: 20190711
  Serious: Yes (Other)
  Sender: FDA-Public Use
  Company Number: US-JNJFOC-20181138278

PATIENT
  Age: 72 Year
  Sex: Male

DRUGS (20)
  1. IMBRUVICA [Suspect]
     Active Substance: IBRUTINIB
     Indication: CHRONIC LYMPHOCYTIC LEUKAEMIA
     Route: 048
     Dates: start: 20161122
  2. IMBRUVICA [Suspect]
     Active Substance: IBRUTINIB
     Indication: CHRONIC LYMPHOCYTIC LEUKAEMIA
     Route: 048
     Dates: start: 20180522
  3. FOLIC ACID. [Concomitant]
     Active Substance: FOLIC ACID
  4. SULFASALAZINE. [Concomitant]
     Active Substance: SULFASALAZINE
  5. SILDENAFIL. [Concomitant]
     Active Substance: SILDENAFIL
  6. VITAMIN B12 [Concomitant]
     Active Substance: CYANOCOBALAMIN
  7. MULTI [Concomitant]
  8. LOSARTAN. [Concomitant]
     Active Substance: LOSARTAN
  9. IMBRUVICA [Suspect]
     Active Substance: IBRUTINIB
     Indication: CHRONIC LYMPHOCYTIC LEUKAEMIA
     Route: 048
     Dates: start: 20180425, end: 20180521
  10. ATORVASTATIN [Concomitant]
     Active Substance: ATORVASTATIN
  11. VITAMIN D [Concomitant]
     Active Substance: VITAMIN D NOS
  12. MEMANTINE. [Concomitant]
     Active Substance: MEMANTINE
  13. LISINOPRIL. [Concomitant]
     Active Substance: LISINOPRIL
  14. CIALIS [Concomitant]
     Active Substance: TADALAFIL
  15. IMBRUVICA [Suspect]
     Active Substance: IBRUTINIB
     Indication: CHRONIC LYMPHOCYTIC LEUKAEMIA
     Route: 048
     Dates: start: 20180401
  16. SYNTHROID [Concomitant]
     Active Substance: LEVOTHYROXINE SODIUM
  17. TAMSULOSIN [Concomitant]
     Active Substance: TAMSULOSIN
  18. IMBRUVICA [Suspect]
     Active Substance: IBRUTINIB
     Indication: CHRONIC LYMPHOCYTIC LEUKAEMIA
     Route: 048
     Dates: start: 20170720, end: 20180423
  19. CETIRIZINE [Concomitant]
     Active Substance: CETIRIZINE HYDROCHLORIDE
  20. METOPROLOL. [Concomitant]
     Active Substance: METOPROLOL

REACTIONS (4)
  - Computerised tomogram coronary artery abnormal [Unknown]
  - Atrial fibrillation [Not Recovered/Not Resolved]
  - Fatigue [Recovering/Resolving]
  - Atrial flutter [Unknown]

NARRATIVE: CASE EVENT DATE: 20181110
